FAERS Safety Report 9824911 (Version 3)
Quarter: 2016Q3

REPORT INFORMATION
  Report Type: Report from Study
  Country: AU (occurrence: AU)
  Receive Date: 20140117
  Receipt Date: 20160930
  Transmission Date: 20161109
  Serious: Yes (Death, Other)
  Sender: FDA-Public Use
  Company Number: AU-BRISTOL-MYERS SQUIBB COMPANY-19977412

PATIENT
  Age: 77 Year
  Sex: Male
  Weight: 87 kg

DRUGS (1)
  1. IPILIMUMAB [Suspect]
     Active Substance: IPILIMUMAB
     Indication: METASTATIC MALIGNANT MELANOMA
     Dosage: 240 MG
     Route: 042
     Dates: start: 201312

REACTIONS (3)
  - Sepsis [Fatal]
  - Pneumonia [Unknown]
  - Cellulitis [Unknown]

NARRATIVE: CASE EVENT DATE: 201312
